FAERS Safety Report 6072352-0 (Version None)
Quarter: 2009Q1

REPORT INFORMATION
  Report Type: 
  Country: None (occurrence: None)
  Receive Date: 20090210
  Receipt Date: 20090205
  Transmission Date: 20090719
  Serious: Yes (Hospitalization)
  Sender: FDA-Public Use
  Company Number: US-JNJFOC-20090200757

PATIENT
  Age: 43 Year
  Sex: Male

DRUGS (3)
  1. PARACETAMOL [Suspect]
  2. PARACETAMOL [Suspect]
     Indication: DRUG USE FOR UNKNOWN INDICATION
  3. ALCOHOL [Suspect]
     Indication: DRUG USE FOR UNKNOWN INDICATION
     Dosage: ONE HALF GALLON (APPROXIMATELY 4L) OF VODKA

REACTIONS (6)
  - CHEST PAIN [None]
  - HAEMOLYTIC ANAEMIA [None]
  - HEPATOCELLULAR INJURY [None]
  - INTENTIONAL OVERDOSE [None]
  - METHAEMOGLOBINAEMIA [None]
  - SUICIDE ATTEMPT [None]
